FAERS Safety Report 6882782-2 (Version None)
Quarter: 2010Q3

REPORT INFORMATION
  Report Type: 
  Country: None (occurrence: None)
  Receive Date: 20100702
  Receipt Date: 20090827
  Transmission Date: 20110219
  Serious: Yes (Other)
  Sender: FDA-Public Use
  Company Number: 2009247400

PATIENT
  Sex: Female
  Weight: 90.7 kg

DRUGS (11)
  1. SERTRALINE HYDROCHLORIDE [Suspect]
     Indication: ANXIETY
     Dosage: 200 MG, 1X/DAY, ORAL
     Route: 048
     Dates: start: 20080101, end: 20090501
  2. SERTRALINE HYDROCHLORIDE [Suspect]
     Indication: BIPOLAR I DISORDER
     Dosage: 200 MG, 1X/DAY, ORAL
     Route: 048
     Dates: start: 20080101, end: 20090501
  3. SERTRALINE HYDROCHLORIDE [Suspect]
     Indication: OBSESSIVE-COMPULSIVE DISORDER
     Dosage: 200 MG, 1X/DAY, ORAL
     Route: 048
     Dates: start: 20080101, end: 20090501
  4. LAMOTRIGINE [Concomitant]
  5. ORAL CONTRACEPTIVE NOS (ORAL CONTRACEPTIVE NOS) [Concomitant]
  6. VYTORIN [Concomitant]
  7. ARIPIPRAZOLE [Concomitant]
  8. ACTOS [Concomitant]
  9. METFORMIN HCL [Concomitant]
  10. LEVOTHYROXINE SODIUM [Concomitant]
  11. HALOPERIDOL [Concomitant]

REACTIONS (4)
  - DEPRESSION [None]
  - DRUG INEFFECTIVE [None]
  - FATIGUE [None]
  - SUICIDAL IDEATION [None]
